FAERS Safety Report 22332932 (Version 1)
Quarter: 2023Q2

REPORT INFORMATION
  Report Type: Spontaneous
  Country: PT (occurrence: None)
  Receive Date: 20230517
  Receipt Date: 20230517
  Transmission Date: 20230722
  Serious: Yes (Other)
  Sender: FDA-Public Use
  Company Number: 2023A106984

PATIENT
  Age: 63 Year
  Sex: Male

DRUGS (5)
  1. IMFINZI [Suspect]
     Active Substance: DURVALUMAB
     Indication: Cholangiocarcinoma
     Dosage: 780.0MG EVERY CYCLE
     Route: 042
     Dates: start: 20230316
  2. IMFINZI [Suspect]
     Active Substance: DURVALUMAB
     Indication: Metastases to liver
     Dosage: 780.0MG EVERY CYCLE
     Route: 042
     Dates: start: 20230316
  3. CISPLATIN [Concomitant]
     Active Substance: CISPLATIN
     Dosage: 48.5MG EVERY CYCLE
     Route: 042
  4. GEMCITABINE [Concomitant]
     Active Substance: GEMCITABINE
     Dosage: 1940.0MG EVERY CYCLE
     Route: 042
  5. FOSAPREPITANT [Concomitant]
     Active Substance: FOSAPREPITANT
     Dosage: 150.0MG EVERY CYCLE
     Route: 042

REACTIONS (4)
  - Neuropathy peripheral [Unknown]
  - Aphthous ulcer [Unknown]
  - Acute kidney injury [Unknown]
  - Syncope [Unknown]

NARRATIVE: CASE EVENT DATE: 20230424
